FAERS Safety Report 11225981 (Version 1)
Quarter: 2015Q2

REPORT INFORMATION
  Report Type: Report from Study
  Country: BR (occurrence: BR)
  Receive Date: 20150629
  Receipt Date: 20150629
  Transmission Date: 20150821
  Serious: Yes (Other)
  Sender: FDA-Public Use
  Company Number: PHHY2015BR074832

PATIENT
  Sex: Female
  Weight: 78 kg

DRUGS (2)
  1. ALENIA                             /01538101/ [Suspect]
     Active Substance: BUDESONIDE\FORMOTEROL FUMARATE
     Indication: LUNG DISORDER
     Dosage: 1 DF, BID (1 IN THE MORING AND 1 IN THE EVENING)
     Route: 065
  2. ONBREZ BREEZHALER [Suspect]
     Active Substance: INDACATEROL
     Indication: LUNG DISORDER
     Dosage: 400 UG, BID
     Route: 065
     Dates: start: 2011, end: 201205

REACTIONS (2)
  - Tremor [Unknown]
  - Pulmonary function test decreased [Unknown]

NARRATIVE: CASE EVENT DATE: 2012
